FAERS Safety Report 12499087 (Version 1)
Quarter: 2016Q2

REPORT INFORMATION
  Report Type: Report from Study
  Country: US (occurrence: US)
  Receive Date: 20160627
  Receipt Date: 20160627
  Transmission Date: 20160815
  Serious: Yes (Other)
  Sender: FDA-Public Use
  Company Number: US-AMGEN-USASL2016079861

PATIENT
  Age: 59 Year
  Sex: Female

DRUGS (1)
  1. ENBREL [Suspect]
     Active Substance: ETANERCEPT
     Indication: PSORIATIC ARTHROPATHY
     Dosage: UNK UNK, QWK
     Route: 065

REACTIONS (9)
  - Hypertension [Unknown]
  - Musculoskeletal disorder [Unknown]
  - Headache [Unknown]
  - Arthropathy [Unknown]
  - Injection site pain [Unknown]
  - Overdose [Unknown]
  - Bowel movement irregularity [Unknown]
  - Conversion disorder [Unknown]
  - Abdominal discomfort [Unknown]
